FAERS Safety Report 19869129 (Version 7)
Quarter: 2022Q1

REPORT INFORMATION
  Report Type: Spontaneous
  Country: CA (occurrence: CA)
  Receive Date: 20210922
  Receipt Date: 20220222
  Transmission Date: 20220424
  Serious: Yes (Hospitalization, Other)
  Sender: FDA-Public Use
  Company Number: CA-PFIZER INC-202100999278

PATIENT
  Age: 49 Year
  Sex: Female
  Weight: 84 kg

DRUGS (8)
  1. XELJANZ [Suspect]
     Active Substance: TOFACITINIB CITRATE
     Indication: Colitis ulcerative
     Dosage: 10 MG, 2X/DAY FOR 8 WEEKS
     Route: 048
     Dates: start: 20210728, end: 2022
  2. XELJANZ [Suspect]
     Active Substance: TOFACITINIB CITRATE
     Dosage: 5MG, 2X/DAY (MAINTENANCE DOSE; FOR 4 WEEKS)
     Route: 048
     Dates: start: 20210922
  3. AVENTYL [Concomitant]
     Active Substance: NORTRIPTYLINE HYDROCHLORIDE
     Indication: Migraine
     Dosage: 1 DF, DAILY
     Route: 065
  4. CORTISONE [Concomitant]
     Active Substance: CORTISONE
     Dosage: UNK
     Dates: start: 202011, end: 20211110
  5. PREDNISONE [Concomitant]
     Active Substance: PREDNISONE
     Dosage: 20 MG, 1X/DAY
     Route: 065
     Dates: start: 202011
  6. PREDNISONE [Concomitant]
     Active Substance: PREDNISONE
     Dosage: 15 MG
  7. PREDNISONE [Concomitant]
     Active Substance: PREDNISONE
     Dosage: 5MG, 1X/DAY
     Route: 065
     Dates: end: 20211110
  8. RIZATRIPTAN [Concomitant]
     Active Substance: RIZATRIPTAN
     Indication: Migraine
     Dosage: 1 DF, AS NEEDED
     Route: 065

REACTIONS (14)
  - Colectomy [Unknown]
  - Exposed bone in jaw [Not Recovered/Not Resolved]
  - Post procedural infection [Not Recovered/Not Resolved]
  - Haemorrhage [Not Recovered/Not Resolved]
  - Haematochezia [Not Recovered/Not Resolved]
  - Drug ineffective [Unknown]
  - Infection [Recovered/Resolved]
  - Ocular discomfort [Not Recovered/Not Resolved]
  - Dyspepsia [Not Recovered/Not Resolved]
  - Secretion discharge [Not Recovered/Not Resolved]
  - Anxiety [Unknown]
  - Illusion [Not Recovered/Not Resolved]
  - Abdominal tenderness [Not Recovered/Not Resolved]
  - Oedema peripheral [Not Recovered/Not Resolved]

NARRATIVE: CASE EVENT DATE: 20210728
